FAERS Safety Report 18134231 (Version 2)
Quarter: 2020Q4

REPORT INFORMATION
  Report Type: Spontaneous
  Country: US (occurrence: US)
  Receive Date: 20200811
  Receipt Date: 20201102
  Transmission Date: 20210113
  Serious: Yes (Other)
  Sender: FDA-Public Use
  Company Number: US-BAYER-2020-156956

PATIENT
  Age: 30 Year
  Sex: Male

DRUGS (2)
  1. KOGENATE FS [Suspect]
     Active Substance: ANTIHEMOPHILIC FACTOR, HUMAN RECOMBINANT
     Dosage: 8 DF OVER THE PAST MONTHS
     Route: 042
     Dates: start: 2020, end: 2020
  2. KOGENATE FS [Suspect]
     Active Substance: ANTIHEMOPHILIC FACTOR, HUMAN RECOMBINANT
     Dosage: 1930 U
     Route: 042

REACTIONS (2)
  - Wrist fracture [None]
  - Haemarthrosis [None]

NARRATIVE: CASE EVENT DATE: 2020
